FAERS Safety Report 4276775-1 (Version None)
Quarter: 2004Q1

REPORT INFORMATION
  Report Type: 
  Country: None (occurrence: None)
  Receive Date: 20040120
  Receipt Date: 20040108
  Transmission Date: 20041129
  Serious: Yes (Hospitalization)
  Sender: FDA-Public Use
  Company Number: 04P-087-0247021-00

PATIENT
  Age: 52 Year
  Sex: Male

DRUGS (8)
  1. KALETRA [Suspect]
     Indication: HIV INFECTION
     Dosage: 6 CAPSULES, 1 IN 1 D, PER ORAL
     Route: 048
     Dates: start: 20030120, end: 20030216
  2. ZIDOVUDINE [Suspect]
     Indication: HIV INFECTION
     Dosage: 600 MG, 1 IN 1 D, PER ORAL
     Route: 048
     Dates: start: 20030120
  3. DIDANOSINE [Suspect]
     Indication: HIV INFECTION
     Dosage: 250 MG, 1 IN 1 D, PER ORAL
     Route: 048
     Dates: start: 20020401, end: 20020610
  4. STAVUDINE [Suspect]
     Indication: HIV INFECTION
     Dosage: 60 MG, 1 IN 1 D, PER ORAL
     Route: 048
     Dates: start: 20030304
  5. ABACAVIR SULFATE [Suspect]
     Indication: HIV INFECTION
     Dosage: 600 MG, 1 IN 1 D, PER ORAL
     Route: 048
     Dates: start: 20020404, end: 20020610
  6. EFAVIRENZ [Suspect]
     Indication: HIV INFECTION
     Dosage: 600 MG, 1 IN 1 D, PER ORAL
     Route: 048
     Dates: start: 20030304
  7. DELAVIRDINE MESYLATE [Suspect]
     Indication: HIV INFECTION
     Dosage: 1200 MG, 1 IN 1 D , PER ORAL
     Route: 048
     Dates: start: 20030120, end: 20030216
  8. NEVIRAPINE [Suspect]
     Indication: HIV INFECTION
     Dosage: 400 MG, 1 IN 1 D, PER ORAL
     Route: 048
     Dates: start: 20020402, end: 20020610

REACTIONS (2)
  - HYPOXIA [None]
  - PNEUMOCYSTIS CARINII PNEUMONIA [None]
